FAERS Safety Report 13567181 (Version 1)
Quarter: 2017Q2

REPORT INFORMATION
  Report Type: Spontaneous
  Country: US (occurrence: US)
  Receive Date: 20170522
  Receipt Date: 20170522
  Transmission Date: 20170830
  Serious: No
  Sender: FDA-Public Use
  Company Number: US-BAYER-2017-094531

PATIENT
  Sex: Female

DRUGS (2)
  1. CLARITIN [Suspect]
     Active Substance: LORATADINE
     Indication: HYPERSENSITIVITY
  2. CLARITIN [Suspect]
     Active Substance: LORATADINE
     Indication: VIRAL UPPER RESPIRATORY TRACT INFECTION

REACTIONS (9)
  - Mood altered [Recovered/Resolved]
  - Anger [None]
  - Anger [Recovered/Resolved]
  - Abnormal behaviour [None]
  - Abnormal behaviour [Recovered/Resolved]
  - Mood altered [None]
  - Crying [None]
  - Crying [Recovered/Resolved]
  - Mood swings [None]
